FAERS Safety Report 6329095-5 (Version None)
Quarter: 2009Q3

REPORT INFORMATION
  Report Type: 
  Country: None (occurrence: None)
  Receive Date: 20090826
  Receipt Date: 20090813
  Transmission Date: 20100115
  Serious: Yes (Other)
  Sender: FDA-Public Use
  Company Number: SA-BAYER-200928357GPV

PATIENT
  Age: 27 Year
  Sex: Male
  Weight: 63 kg

DRUGS (3)
  1. CIPRO [Suspect]
     Indication: PROSTATITIS
     Dosage: UNIT DOSE: 500 MG
     Route: 048
  2. ELIDEL [Concomitant]
     Indication: DRUG USE FOR UNKNOWN INDICATION
     Dosage: FOR TWO WEEKS
     Route: 065
     Dates: start: 20090730
  3. XATRAL XL [Concomitant]
     Indication: PROSTATITIS
     Dosage: UNIT DOSE: 10 MG
     Route: 048

REACTIONS (3)
  - HYPERTHYROIDISM [None]
  - THYROIDITIS [None]
  - WEIGHT DECREASED [None]
